FAERS Safety Report 7381584-0 (Version None)
Quarter: 2011Q1

REPORT INFORMATION
  Report Type: 
  Country: None (occurrence: None)
  Receive Date: 20110329
  Receipt Date: 20110316
  Transmission Date: 20110831
  Serious: Yes (Hospitalization)
  Sender: FDA-Public Use
  Company Number: PHHY2011GB21238

PATIENT

DRUGS (4)
  1. CARBAMAZEPINE RETARD [Suspect]
  2. FRUSEMIDE [Suspect]
  3. WARFARIN [Suspect]
  4. ISOSORBIDE MONONITRATE [Suspect]

REACTIONS (3)
  - PORENCEPHALY [None]
  - GRAND MAL CONVULSION [None]
  - COMPLEX PARTIAL SEIZURES [None]
